FAERS Safety Report 13677929 (Version 4)
Quarter: 2017Q3

REPORT INFORMATION
  Report Type: Spontaneous
  Country: JP (occurrence: JP)
  Receive Date: 20170622
  Receipt Date: 20170809
  Transmission Date: 20171127
  Serious: Yes (Hospitalization)
  Sender: FDA-Public Use
  Company Number: JP-NOVOPROD-550106

PATIENT
  Age: 76 Year
  Sex: Female

DRUGS (16)
  1. PRAVASTATIN SODIUM. [Concomitant]
     Active Substance: PRAVASTATIN SODIUM
     Indication: HYPERCHOLESTEROLAEMIA
     Dosage: 5 MG, QD
     Route: 048
     Dates: end: 20170617
  2. SEIBULE [Concomitant]
     Active Substance: MIGLITOL
     Indication: TYPE 2 DIABETES MELLITUS
     Dosage: 50 MG, TID
     Route: 048
  3. INSULIN GLARGINE BS INJ. MIRIOPEN [LILLY] [Suspect]
     Active Substance: INSULIN GLARGINE
     Indication: TYPE 2 DIABETES MELLITUS
     Dosage: 10 U, QD
     Route: 065
     Dates: start: 20170630, end: 20170711
  4. RYZODEG 70/30 [Suspect]
     Active Substance: INSULIN ASPART\INSULIN DEGLUDEC
     Indication: TYPE 2 DIABETES MELLITUS
     Dosage: 8 U, QD (8U/MORNING)
     Route: 058
     Dates: start: 20170425, end: 20170614
  5. NOVORAPID [Suspect]
     Active Substance: INSULIN ASPART
     Indication: TYPE 2 DIABETES MELLITUS
     Dosage: 13 U, QD (5-4-4 UNITS/DAY)
     Route: 058
     Dates: start: 200305
  6. NOVORAPID [Suspect]
     Active Substance: INSULIN ASPART
     Dosage: 8 U, QD (0-4-4 UNITS/DAY)
     Route: 058
     Dates: start: 20170425
  7. NOVORAPID [Suspect]
     Active Substance: INSULIN ASPART
     Dosage: 12 U, QD
     Route: 058
     Dates: start: 20170701
  8. AMLODIPINE [Concomitant]
     Active Substance: AMLODIPINE BESYLATE
     Indication: HYPERTENSION
     Dosage: 10 MG, QD
     Route: 048
     Dates: end: 20170614
  9. METGLUCO [Concomitant]
     Active Substance: METFORMIN HYDROCHLORIDE
     Indication: TYPE 2 DIABETES MELLITUS
     Dosage: 250 MG, QD
     Route: 048
  10. MAGMITT [Concomitant]
     Active Substance: MAGNESIUM OXIDE
     Indication: CONSTIPATION
     Dosage: 330 MG, BID
     Route: 048
  11. LOSARTAN POTASSIUM. [Concomitant]
     Active Substance: LOSARTAN POTASSIUM
     Indication: HYPERTENSION
     Dosage: 100 MG, QD
     Route: 048
     Dates: end: 20170614
  12. EPADEL                             /01682401/ [Concomitant]
     Active Substance: ICOSAPENT
     Indication: ARTERIOSCLEROSIS
     Dosage: 900 MG, QD
     Route: 048
     Dates: end: 20170614
  13. JUVELA                             /00110502/ [Concomitant]
     Indication: ARTERIOSCLEROSIS
     Dosage: 50 MG, QD
     Route: 048
  14. NOVORAPID [Suspect]
     Active Substance: INSULIN ASPART
     Dosage: UNK
     Route: 058
  15. LANTUS [Concomitant]
     Active Substance: INSULIN GLARGINE
     Indication: TYPE 2 DIABETES MELLITUS
     Dosage: UNK
     Route: 065
  16. LANTUS [Concomitant]
     Active Substance: INSULIN GLARGINE
     Dosage: 10 U, QD
     Route: 065
     Dates: start: 20170711

REACTIONS (2)
  - Immune thrombocytopenic purpura [Recovered/Resolved]
  - Blood glucose increased [Unknown]

NARRATIVE: CASE EVENT DATE: 20170502
